FAERS Safety Report 9645623 (Version 2)
Quarter: 2013Q4

REPORT INFORMATION
  Report Type: Spontaneous
  Country: US (occurrence: US)
  Receive Date: 20131025
  Receipt Date: 20131029
  Transmission Date: 20140711
  Serious: Yes (Other)
  Sender: FDA-Public Use
  Company Number: US-PFIZER INC-2013305782

PATIENT
  Age: 68 Year
  Sex: Female

DRUGS (3)
  1. ENBREL [Suspect]
     Indication: RHEUMATOID ARTHRITIS
     Dosage: UNK MG, QWK
     Dates: start: 20130930, end: 20131018
  2. METHOTREXATE SODIUM [Suspect]
     Dosage: 25 MG, QWK FOR ABOUT 1.5 MONTH
     Route: 048
  3. PLAQUENIL [Concomitant]
     Dosage: 400 MG, QD FOR MAYBE 20 YEARS
     Route: 048

REACTIONS (7)
  - Neck mass [Not Recovered/Not Resolved]
  - Submandibular mass [Not Recovered/Not Resolved]
  - Skin lesion [Not Recovered/Not Resolved]
  - Rash generalised [Not Recovered/Not Resolved]
  - Skin discolouration [Not Recovered/Not Resolved]
  - Urine odour abnormal [Unknown]
  - Abdominal discomfort [Unknown]
